FAERS Safety Report 16062729 (Version 1)
Quarter: 2019Q1

REPORT INFORMATION
  Report Type: Spontaneous
  Country: AU (occurrence: AU)
  Receive Date: 20190312
  Receipt Date: 20190312
  Transmission Date: 20190418
  Serious: Yes (Hospitalization)
  Sender: FDA-Public Use
  Company Number: AU-MYLANLABS-2019M1022326

PATIENT
  Age: 42 Year
  Sex: Male

DRUGS (7)
  1. PANTOPRAZOLE [Concomitant]
     Active Substance: PANTOPRAZOLE
     Indication: PRODUCT USED FOR UNKNOWN INDICATION
     Route: 065
  2. KETAMINE [Suspect]
     Active Substance: KETAMINE
     Dosage: THIRD SUBANAESTHETIC KETAMINE INFUSION
     Route: 058
  3. DULOXETINE. [Concomitant]
     Active Substance: DULOXETINE
     Indication: PRODUCT USED FOR UNKNOWN INDICATION
     Route: 065
  4. KETAMINE [Suspect]
     Active Substance: KETAMINE
     Dosage: ON DAY 0; THIRD SUBANAESTHETIC KETAMINE INFUSION
     Route: 058
  5. KETAMINE [Suspect]
     Active Substance: KETAMINE
     Dosage: ON DAY 1; THIRD SUBANAESTHETIC KETAMINE INFUSION
     Route: 058
  6. TAPENTADOL [Concomitant]
     Active Substance: TAPENTADOL
     Indication: PRODUCT USED FOR UNKNOWN INDICATION
     Dosage: IMMEDIATE RELEASE AS NEEDED
     Route: 065
  7. KETAMINE [Suspect]
     Active Substance: KETAMINE
     Indication: COMPLEX REGIONAL PAIN SYNDROME
     Dosage: SUBANAESTHETIC KETAMINE INFUSION (FIRST AND SECOND INFUSION)
     Route: 058

REACTIONS (6)
  - Jaundice [Recovering/Resolving]
  - Cholestasis [Unknown]
  - Cholangitis [Unknown]
  - Hepatotoxicity [Recovering/Resolving]
  - Bile duct obstruction [Recovering/Resolving]
  - Biliary dilatation [Unknown]
